FAERS Safety Report 25743187 (Version 2)
Quarter: 2025Q4

REPORT INFORMATION
  Report Type: Report from Study
  Country: US (occurrence: US)
  Receive Date: 20250830
  Receipt Date: 20251028
  Transmission Date: 20260118
  Serious: Yes (Other)
  Sender: NOVARTIS
  Company Number: US-002147023-NVSC2025US103307

PATIENT
  Age: 73 Year
  Sex: Female

DRUGS (2)
  1. LEQVIO [Suspect]
     Active Substance: INCLISIRAN SODIUM
     Indication: Product used for unknown indication
     Dosage: UNK
     Route: 058
     Dates: start: 20250801
  2. LEQVIO [Suspect]
     Active Substance: INCLISIRAN SODIUM
     Dosage: UNK
     Route: 058
     Dates: start: 20250815

REACTIONS (9)
  - Diabetes mellitus [Unknown]
  - Weight loss poor [Unknown]
  - Bone disorder [Unknown]
  - Nerve injury [Unknown]
  - Pain [Unknown]
  - Hypertension [Unknown]
  - Feeling abnormal [Unknown]
  - Lethargy [Unknown]
  - Scar [Unknown]

NARRATIVE: CASE EVENT DATE: 20250801
